FAERS Safety Report 5534397-6 (Version None)
Quarter: 2007Q4

REPORT INFORMATION
  Report Type: 
  Country: None (occurrence: None)
  Receive Date: 20071120
  Receipt Date: 20070824
  Transmission Date: 20080405
  Serious: No
  Sender: FDA-Public Use
  Company Number: 2007SP017130

PATIENT
  Age: 66 Year
  Sex: Male
  Weight: 86.1834 kg

DRUGS (5)
  1. NOXAFIL [Suspect]
     Indication: SYSTEMIC ANTIFUNGAL TREATMENT
     Dosage: TID;PO
     Route: 048
     Dates: start: 20070701
  2. FLUCONAZOLE [Concomitant]
  3. VALTREX [Concomitant]
  4. CIPROFLOXACIN [Concomitant]
  5. ALLOPURINOL [Concomitant]

REACTIONS (2)
  - ABDOMINAL PAIN UPPER [None]
  - GASTROINTESTINAL DISORDER [None]
